FAERS Safety Report 8850895 (Version 6)
Quarter: 2014Q1

REPORT INFORMATION
  Report Type: Spontaneous
  Country: US (occurrence: US)
  Receive Date: 20121019
  Receipt Date: 20140220
  Transmission Date: 20141002
  Serious: Yes (Other)
  Sender: FDA-Public Use
  Company Number: US-PFIZER INC-2012258045

PATIENT
  Age: 82 Year
  Sex: Female
  Weight: 58.5 kg

DRUGS (7)
  1. LIPITOR [Suspect]
     Indication: BLOOD CHOLESTEROL INCREASED
     Dosage: 80 MG (40 MG, 2 TABLETS), DAILY
  2. LIPITOR [Suspect]
     Indication: BLOOD CHOLESTEROL ABNORMAL
     Dosage: 80 MG, 1X/DAY
  3. SYNTHROID [Concomitant]
     Indication: THYROID DISORDER
     Dosage: 50 MG, DAILY
  4. AVAPRO [Concomitant]
     Indication: CARDIAC DISORDER
     Dosage: 150 MG, DAILY
  5. PLAVIX [Concomitant]
     Indication: ANTICOAGULANT THERAPY
     Dosage: 75 MG, DAILY
  6. CALCIUM [Concomitant]
     Dosage: UNK
  7. VITAMIN D [Concomitant]
     Dosage: UNK

REACTIONS (5)
  - Cerebrovascular accident [Unknown]
  - Arterial occlusive disease [Unknown]
  - Dysphagia [Unknown]
  - Blood glucose increased [Unknown]
  - Weight decreased [Unknown]
